FAERS Safety Report 4885773-6 (Version None)
Quarter: 2006Q1

REPORT INFORMATION
  Report Type: 
  Country: None (occurrence: None)
  Receive Date: 20060117
  Receipt Date: 20060103
  Transmission Date: 20060701
  Serious: Yes (Hospitalization)
  Sender: FDA-Public Use
  Company Number: 2006003273

PATIENT
  Age: 81 Year
  Sex: Female
  Weight: 60 kg

DRUGS (12)
  1. XANAX [Suspect]
     Indication: ILL-DEFINED DISORDER
     Dosage: 0.37 MG (0.25 MG 1 D)ORAL
     Route: 048
     Dates: end: 20051020
  2. MEPRONIZINE (ACEPROMAZINE, MEPROBAMATE) [Suspect]
     Indication: ILL-DEFINED DISORDER
     Dosage: (1 D) ORAL
     Route: 048
     Dates: end: 20051020
  3. STILNOX (ZOLPIDEM) [Suspect]
     Indication: ILL-DEFINED DISORDER
     Dosage: 10 MG (10 MG 1 IN 1D) ORAL
     Route: 048
     Dates: end: 20051020
  4. SPIRONOLACTONE [Concomitant]
  5. FLUINDIONE(FLUINDIONE) [Concomitant]
  6. AMLODIPINE [Concomitant]
  7. FUROSEMIDE [Concomitant]
  8. NITROGLYCERIN [Concomitant]
  9. PREDNISOLONE [Concomitant]
  10. CIBLOR (AMOXICILLIN TRIHYDRATE, CLAVULANATE POTASSIUM) [Concomitant]
  11. AMBROXOL (AMBROXOL) [Concomitant]
  12. TERBUTALINE SULFATE [Concomitant]

REACTIONS (8)
  - ASTHENIA [None]
  - FALL [None]
  - HYPOTENSION [None]
  - INFLAMMATION [None]
  - MALAISE [None]
  - RESPIRATORY FAILURE [None]
  - RIGHT VENTRICULAR FAILURE [None]
  - SUPERINFECTION LUNG [None]
